FAERS Safety Report 6308106-7 (Version None)
Quarter: 2009Q3

REPORT INFORMATION
  Report Type: 
  Country: None (occurrence: None)
  Receive Date: 20090813
  Receipt Date: 20090804
  Transmission Date: 20100115
  Serious: Yes (Hospitalization)
  Sender: FDA-Public Use
  Company Number: JP-AVENTIS-200911622JP

PATIENT
  Age: 40 Year
  Sex: Female
  Weight: 48 kg

DRUGS (5)
  1. ALLEGRA [Suspect]
     Indication: FOOD ALLERGY
     Route: 048
     Dates: start: 20090501, end: 20090522
  2. CELESTAMINE                        /01221101/ [Suspect]
     Dates: end: 20090522
  3. IPD [Suspect]
     Dates: end: 20090522
  4. CELESTAMINE                        /01221101/ [Concomitant]
  5. IPD [Concomitant]

REACTIONS (2)
  - CHROMATURIA [None]
  - HEPATITIS ACUTE [None]
